FAERS Safety Report 23527426 (Version 2)
Quarter: 2024Q1

REPORT INFORMATION
  Report Type: Spontaneous
  Country: US (occurrence: US)
  Receive Date: 20240215
  Receipt Date: 20240222
  Transmission Date: 20240410
  Serious: Yes (Other)
  Sender: FDA-Public Use
  Company Number: US-Calliditas-2024CAL00175

PATIENT
  Age: 45 Year
  Sex: Female
  Weight: 145.15 kg

DRUGS (2)
  1. TARPEYO [Suspect]
     Active Substance: BUDESONIDE
     Indication: IgA nephropathy
     Dosage: 16 MG (4 MG CAPSULES) ONCE DAILY
     Route: 048
     Dates: start: 20240122
  2. FILSPARI [Suspect]
     Active Substance: SPARSENTAN

REACTIONS (7)
  - Hunger [Not Recovered/Not Resolved]
  - Dyspepsia [Not Recovered/Not Resolved]
  - Fatigue [Not Recovered/Not Resolved]
  - False positive tuberculosis test [Recovered/Resolved]
  - Psoriatic arthropathy [Recovering/Resolving]
  - Psoriasis [Unknown]
  - Renal failure [Unknown]

NARRATIVE: CASE EVENT DATE: 20240101
